FAERS Safety Report 9436476 (Version 2)
Quarter: 2013Q3

REPORT INFORMATION
  Report Type: Report from Study
  Country: IT (occurrence: IT)
  Receive Date: 20130802
  Receipt Date: 20130814
  Transmission Date: 20140515
  Serious: Yes (Other)
  Sender: FDA-Public Use
  Company Number: IT-ROCHE-1255788

PATIENT
  Age: 67 Year
  Sex: 0
  Weight: 49 kg

DRUGS (1)
  1. VEMURAFENIB [Suspect]
     Indication: METASTATIC MALIGNANT MELANOMA
     Route: 065
     Dates: start: 20130308, end: 20130731

REACTIONS (2)
  - Disease progression [Unknown]
  - Prostate cancer [Unknown]
